FAERS Safety Report 13131028 (Version 3)
Quarter: 2017Q1

REPORT INFORMATION
  Report Type: Report from Study
  Country: TR (occurrence: TR)
  Receive Date: 20170119
  Receipt Date: 20170316
  Transmission Date: 20170428
  Serious: Yes (Death, Hospitalization)
  Sender: FDA-Public Use
  Company Number: TR-CELGENEUS-TUR-2014112902

PATIENT
  Age: 61 Year
  Sex: Male
  Weight: 75 kg

DRUGS (2)
  1. REVLIMID [Suspect]
     Active Substance: LENALIDOMIDE
     Indication: PLASMA CELL MYELOMA
     Dosage: 15 MILLIGRAM
     Route: 048
     Dates: start: 20140718, end: 20140815
  2. NEURONTIN [Suspect]
     Active Substance: GABAPENTIN
     Indication: PRODUCT USED FOR UNKNOWN INDICATION
     Dosage: 16 MILLIGRAM
     Route: 065
     Dates: start: 20130822, end: 20140815

REACTIONS (7)
  - Cardiac arrest [Fatal]
  - General physical health deterioration [Fatal]
  - Dyspnoea [Unknown]
  - Pneumonia [Fatal]
  - Sepsis [Fatal]
  - Malignant pleural effusion [Fatal]
  - Septic shock [Fatal]

NARRATIVE: CASE EVENT DATE: 20140723
